FAERS Safety Report 9656848 (Version 1)
Quarter: 2013Q4

REPORT INFORMATION
  Report Type: Report from Study
  Country: GB (occurrence: GB)
  Receive Date: 20131030
  Receipt Date: 20131030
  Transmission Date: 20140711
  Serious: Yes (Hospitalization)
  Sender: FDA-Public Use
  Company Number: GB-ROCHE-1292743

PATIENT
  Age: 57 Year
  Sex: Female

DRUGS (2)
  1. RITUXIMAB [Suspect]
     Indication: RHEUMATOID ARTHRITIS
     Dosage: LAST DOSE PRIOR TO SAE ON 17/MAY/2011.
     Route: 065
     Dates: start: 20110503
  2. HYDROXYCHLOROQUINE [Concomitant]
     Route: 065
     Dates: start: 201112

REACTIONS (7)
  - Post procedural complication [Recovered/Resolved]
  - Atrial fibrillation [Recovered/Resolved]
  - Anaemia [Unknown]
  - Respiratory failure [Unknown]
  - Pulmonary oedema [Unknown]
  - Pneumonia [Unknown]
  - Respiratory arrest [Unknown]
